FAERS Safety Report 8182414-X (Version None)
Quarter: 2012Q1

REPORT INFORMATION
  Report Type: 
  Country: None (occurrence: None)
  Receive Date: 20120304
  Receipt Date: 20120223
  Transmission Date: 20120608
  Serious: Yes (Disabling)
  Sender: FDA-Public Use
  Company Number: US-MYLANLABS-2012S1004414

PATIENT
  Sex: Female

DRUGS (1)
  1. DIGOXIN [Suspect]
     Indication: PRODUCT USED FOR UNKNOWN INDICATION
     Dates: start: 20070120, end: 20070214

REACTIONS (4)
  - MUSCLE STRAIN [None]
  - BACK PAIN [None]
  - DISABILITY [None]
  - PAIN IN EXTREMITY [None]
